FAERS Safety Report 24542030 (Version 2)
Quarter: 2024Q4

REPORT INFORMATION
  Report Type: Spontaneous
  Country: BR (occurrence: BR)
  Receive Date: 20241023
  Receipt Date: 20241107
  Transmission Date: 20250115
  Serious: Yes (Hospitalization, Disabling)
  Sender: SANOFI AVENTIS
  Company Number: BR-SA-2024SA304771

PATIENT
  Age: 66 Year
  Sex: Male
  Weight: 72 kg

DRUGS (2)
  1. DUPIXENT [Suspect]
     Active Substance: DUPILUMAB
     Indication: Nasal polyps
     Dosage: 600 MG, 1X
     Route: 065
     Dates: start: 20240612, end: 20240612
  2. DUPIXENT [Suspect]
     Active Substance: DUPILUMAB
     Dosage: 300 MG, QOW
     Route: 065
     Dates: start: 202406, end: 20240906

REACTIONS (7)
  - Myositis [Not Recovered/Not Resolved]
  - Pain in extremity [Not Recovered/Not Resolved]
  - Gait disturbance [Not Recovered/Not Resolved]
  - Pain [Not Recovered/Not Resolved]
  - Blood creatine phosphokinase increased [Not Recovered/Not Resolved]
  - Platelet count increased [Not Recovered/Not Resolved]
  - Rheumatoid factor increased [Not Recovered/Not Resolved]

NARRATIVE: CASE EVENT DATE: 20240913
